FAERS Safety Report 23830478 (Version 1)
Quarter: 2024Q2

REPORT INFORMATION
  Report Type: Report from Study
  Country: ES (occurrence: ES)
  Receive Date: 20240508
  Receipt Date: 20240508
  Transmission Date: 20240715
  Serious: Yes (Death, Hospitalization)
  Sender: FDA-Public Use
  Company Number: ES-STADA-01236734

PATIENT
  Age: 50 Year
  Sex: Male

DRUGS (6)
  1. CARBOPLATIN [Suspect]
     Active Substance: CARBOPLATIN
     Indication: Immunosuppressant drug therapy
     Dosage: UNK
     Route: 065
  2. PEMETREXED [Suspect]
     Active Substance: PEMETREXED
     Indication: Immunosuppressant drug therapy
     Dosage: UNK
     Route: 065
  3. PEMBROLIZUMAB [Suspect]
     Active Substance: PEMBROLIZUMAB
     Indication: Immunosuppressant drug therapy
     Dosage: UNK
     Route: 065
  4. HYDROCORTISONE [Suspect]
     Active Substance: HYDROCORTISONE
     Indication: Immunosuppressant drug therapy
     Dosage: 100 MILLIGRAM, 3 TIMES A DAY
     Route: 065
  5. VORICONAZOLE [Concomitant]
     Active Substance: VORICONAZOLE
     Indication: Fungal skin infection
     Dosage: 280 MILLIGRAM, TWO TIMES A DAY
     Route: 042
  6. ANIDULAFUNGIN [Concomitant]
     Active Substance: ANIDULAFUNGIN
     Indication: Fungal skin infection
     Dosage: 100 MILLIGRAM, ONCE A DAY
     Route: 065

REACTIONS (3)
  - Fungal skin infection [Fatal]
  - Fungal infection [Fatal]
  - Drug ineffective [Fatal]
